FAERS Safety Report 21273527 (Version 1)
Quarter: 2022Q3

REPORT INFORMATION
  Report Type: Spontaneous
  Country: US (occurrence: US)
  Receive Date: 20220831
  Receipt Date: 20220831
  Transmission Date: 20221026
  Serious: No
  Sender: FDA-Public Use
  Company Number: US-ORGANON-O2208USA002004

PATIENT
  Age: 29 Year
  Sex: Male

DRUGS (2)
  1. DIPROLENE [Suspect]
     Active Substance: BETAMETHASONE DIPROPIONATE
     Indication: Lichen planopilaris
     Dosage: FORMULATION REPORTED AS SOLUTION
     Route: 061
  2. TRIAMCINOLONE [Concomitant]
     Active Substance: TRIAMCINOLONE
     Indication: Lichen planopilaris
     Dosage: 5 MILLIGRAM/CC

REACTIONS (1)
  - Product use in unapproved indication [Unknown]
